FAERS Safety Report 5243333-1 (Version None)
Quarter: 2007Q1

REPORT INFORMATION
  Report Type: 
  Country: None (occurrence: None)
  Receive Date: 20061201
  Receipt Date: 20060902
  Transmission Date: 20070707
  Serious: No
  Sender: FDA-Public Use
  Company Number: 2006PV020620

PATIENT
  Sex: Male

DRUGS (3)
  1. BYETTA [Suspect]
     Dosage: BID; SC; 5 MCG;BID;SC
     Route: 058
     Dates: start: 20060801
  2. GLIPIZIDE [Concomitant]
  3. VIBE LIQUID MULTIVITAMIN [Concomitant]

REACTIONS (2)
  - BLOOD GLUCOSE INCREASED [None]
  - DYSPEPSIA [None]
